FAERS Safety Report 20349822 (Version 1)
Quarter: 2022Q1

REPORT INFORMATION
  Report Type: Spontaneous
  Country: US (occurrence: None)
  Receive Date: 20220118
  Receipt Date: 20220118
  Transmission Date: 20220423
  Serious: Yes (Hospitalization)
  Sender: FDA-Public Use
  Company Number: None

PATIENT
  Age: 62 Year
  Sex: Female

DRUGS (1)
  1. ORENCIA [Suspect]
     Active Substance: ABATACEPT
     Indication: Rheumatoid arthritis
     Route: 058
     Dates: start: 202108

REACTIONS (5)
  - Allergy to vaccine [None]
  - Throat tightness [None]
  - Palpitations [None]
  - Lip swelling [None]
  - Oxygen saturation decreased [None]

NARRATIVE: CASE EVENT DATE: 20211130
